FAERS Safety Report 14820553 (Version 2)
Quarter: 2018Q4

REPORT INFORMATION
  Report Type: Spontaneous
  Country: BE (occurrence: BE)
  Receive Date: 20180427
  Receipt Date: 20181217
  Transmission Date: 20190204
  Serious: Yes (Other)
  Sender: FDA-Public Use
  Company Number: BE-SA-2018SA118035

PATIENT
  Sex: Male

DRUGS (1)
  1. AUBAGIO [Suspect]
     Active Substance: TERIFLUNOMIDE
     Indication: MULTIPLE SCLEROSIS
     Dosage: UNK UNK,UNK
     Route: 048
     Dates: start: 2014

REACTIONS (6)
  - Immunodeficiency [Unknown]
  - Weight increased [Unknown]
  - Aphasia [Recovered/Resolved]
  - Hodgkin^s disease [Unknown]
  - Epstein-Barr virus infection [Unknown]
  - Diarrhoea [Unknown]
